FAERS Safety Report 25060865 (Version 3)
Quarter: 2025Q1

REPORT INFORMATION
  Report Type: Spontaneous
  Country: US (occurrence: US)
  Receive Date: 20250310
  Receipt Date: 20250322
  Transmission Date: 20250409
  Serious: No
  Sender: AMGEN
  Company Number: US-AMGEN-USASP2025042924

PATIENT
  Age: 54 Year
  Sex: Male

DRUGS (19)
  1. OTEZLA [Suspect]
     Active Substance: APREMILAST
     Indication: Psoriatic arthropathy
     Dosage: 30 MILLIGRAM, BID
     Route: 048
     Dates: start: 20250219
  2. ATORVASTATIN [Concomitant]
     Active Substance: ATORVASTATIN
  3. Betameth dipropionate [Concomitant]
  4. CYCLOBENZAPRINE [Concomitant]
     Active Substance: CYCLOBENZAPRINE
  5. FLEXERIL [Concomitant]
     Active Substance: CYCLOBENZAPRINE HYDROCHLORIDE
  6. HUMIRA [Concomitant]
     Active Substance: ADALIMUMAB
  7. HYDROCHLOROTHIAZIDE [Concomitant]
     Active Substance: HYDROCHLOROTHIAZIDE
  8. LEFLUNOMIDE [Concomitant]
     Active Substance: LEFLUNOMIDE
  9. Lisinoplus [Concomitant]
  10. NAPROSYN [Concomitant]
     Active Substance: NAPROXEN
  11. NAPROXEN [Concomitant]
     Active Substance: NAPROXEN
  12. NORCO [Concomitant]
     Active Substance: ACETAMINOPHEN\HYDROCODONE BITARTRATE
  13. OMEPRAZOLE [Concomitant]
     Active Substance: OMEPRAZOLE
  14. OZEMPIC [Concomitant]
     Active Substance: SEMAGLUTIDE
  15. HERBALS\TURMERIC [Concomitant]
     Active Substance: HERBALS\TURMERIC
  16. VITAMIN D [Concomitant]
     Active Substance: VITAMIN D NOS
  17. XELJANZ [Concomitant]
     Active Substance: TOFACITINIB CITRATE
  18. ZETIA [Concomitant]
     Active Substance: EZETIMIBE
  19. ZINC [Concomitant]
     Active Substance: ZINC

REACTIONS (3)
  - Pain [Not Recovered/Not Resolved]
  - Rash [Recovered/Resolved]
  - Loss of personal independence in daily activities [Unknown]

NARRATIVE: CASE EVENT DATE: 20250101
